FAERS Safety Report 17811174 (Version 1)
Quarter: 2020Q2

REPORT INFORMATION
  Report Type: Spontaneous
  Country: US (occurrence: US)
  Receive Date: 20200521
  Receipt Date: 20200521
  Transmission Date: 20200714
  Serious: Yes (Death, Life-Threatening, Hospitalization, Other)
  Sender: FDA-Public Use
  Company Number: US-ACCORD-182741

PATIENT
  Age: 23 Year
  Sex: Female

DRUGS (9)
  1. METHOTREXATE. [Suspect]
     Active Substance: METHOTREXATE
     Indication: PROPHYLAXIS AGAINST GRAFT VERSUS HOST DISEASE
     Dosage: STOPPED ON DAY 127
  2. PREDNISONE. [Suspect]
     Active Substance: PREDNISONE
     Indication: ACUTE GRAFT VERSUS HOST DISEASE IN SKIN
     Dosage: STARTED ON DAY 127, STOPPED ON DAY 459
  3. BASILIXIMAB [Suspect]
     Active Substance: BASILIXIMAB
     Indication: ACUTE GRAFT VERSUS HOST DISEASE
     Dosage: STARTED ON DAY 149, STOPPED ON DAY 161
  4. TOCILIZUMAB. [Suspect]
     Active Substance: TOCILIZUMAB
     Indication: GRAFT VERSUS HOST DISEASE
     Dosage: STARTED ON DAY 593
  5. MYCOPHENOLIC ACID. [Suspect]
     Active Substance: MYCOPHENOLIC ACID
     Indication: ACUTE GRAFT VERSUS HOST DISEASE
     Dosage: STARTED ON DAY 161, STOPPED ON DAY 270
  6. SIROLIMUS. [Suspect]
     Active Substance: SIROLIMUS
     Indication: ACUTE GRAFT VERSUS HOST DISEASE
     Dosage: STARTED ON DAY 149, STOPPED ON DAY 161
  7. RITUXIMAB. [Suspect]
     Active Substance: RITUXIMAB
     Indication: GRAFT VERSUS HOST DISEASE
     Dosage: STARTED ON DAY 593
  8. INFLIXIMAB [Suspect]
     Active Substance: INFLIXIMAB
     Indication: GRAFT VERSUS HOST DISEASE
     Dosage: STARTED ON DAY 593
  9. METHYLPREDNISOLONE. [Suspect]
     Active Substance: METHYLPREDNISOLONE
     Indication: ACUTE GRAFT VERSUS HOST DISEASE
     Dosage: STARTED ON DAY 149, STOPPED ON DAY 161

REACTIONS (9)
  - Polyomavirus viraemia [Fatal]
  - Hypertension [Fatal]
  - Respiratory failure [Fatal]
  - Polyomavirus-associated nephropathy [Fatal]
  - Multiple organ dysfunction syndrome [Fatal]
  - Diffuse alveolar damage [Fatal]
  - Posterior reversible encephalopathy syndrome [Fatal]
  - Pancreatitis [Fatal]
  - Seizure [Fatal]
